FAERS Safety Report 9669966 (Version 1)
Quarter: 2013Q4

REPORT INFORMATION
  Report Type: Report from Study
  Country: CA (occurrence: CA)
  Receive Date: 20131105
  Receipt Date: 20131105
  Transmission Date: 20140711
  Serious: Yes (Other)
  Sender: FDA-Public Use
  Company Number: CA-UCBSA-102018

PATIENT
  Age: 62 Year
  Sex: Female

DRUGS (7)
  1. CIMZIA [Suspect]
     Indication: RHEUMATOID ARTHRITIS
     Dosage: WKS 0-2-4
     Route: 058
     Dates: start: 20100407, end: 20100505
  2. CIMZIA [Suspect]
     Indication: RHEUMATOID ARTHRITIS
     Dosage: HAD  A BREAK IN AUG
     Route: 058
     Dates: start: 20100519, end: 201308
  3. OMEGA 3 [Concomitant]
  4. VITAMIN D [Concomitant]
  5. MTX [Concomitant]
     Indication: RHEUMATOID ARTHRITIS
     Route: 058
     Dates: start: 1998
  6. ARTHROTEC [Concomitant]
     Route: 048
  7. FOLIC ACID [Concomitant]
     Indication: SUPPLEMENTATION THERAPY
     Route: 048

REACTIONS (1)
  - Localised infection [Recovered/Resolved]
